FAERS Safety Report 4526839-X (Version None)
Quarter: 2004Q4

REPORT INFORMATION
  Report Type: 
  Country: None (occurrence: None)
  Receive Date: 20041213
  Receipt Date: 20041125
  Transmission Date: 20050328
  Serious: Yes (Hospitalization)
  Sender: FDA-Public Use
  Company Number: DSA_25448_2004

PATIENT
  Age: 59 Year
  Sex: Male

DRUGS (1)
  1. TEVETEN [Suspect]
     Indication: HYPERTENSION
     Dosage: DF PO
     Route: 048
     Dates: start: 20040801

REACTIONS (2)
  - FALL [None]
  - SPINAL FRACTURE [None]
